FAERS Safety Report 10587479 (Version 1)
Quarter: 2014Q4

REPORT INFORMATION
  Report Type: Spontaneous
  Country: JP (occurrence: JP)
  Receive Date: 20141117
  Receipt Date: 20141117
  Transmission Date: 20150529
  Serious: Yes (Death, Disabling)
  Sender: FDA-Public Use
  Company Number: JP-TEVA-521047ISR

PATIENT
  Age: 86 Year
  Sex: Male
  Weight: 37 kg

DRUGS (3)
  1. (TS)CIPROFLOXACIN INTRAVENOUS INFUSION 300MG ^TAIYO^, INJ, 300MG150ML1 [Suspect]
     Active Substance: CIPROFLOXACIN
     Indication: PNEUMONIA ASPIRATION
     Dosage: 600 MILLIGRAM DAILY;
     Route: 042
     Dates: start: 20141004, end: 20141008
  2. SOLITA-T NO.3G [Concomitant]
     Active Substance: CARBOHYDRATES\POTASSIUM CHLORIDE\SODIUM CHLORIDE\SODIUM LACTATE
     Dates: start: 20141004, end: 20141008
  3. CLIDAMACIN INJECTION [Concomitant]
     Active Substance: CLINDAMYCIN\CLINDAMYCIN PHOSPHATE
     Route: 042
     Dates: start: 20141004, end: 20141008

REACTIONS (6)
  - Altered state of consciousness [Fatal]
  - Blood glucose decreased [Recovered/Resolved with Sequelae]
  - Weight decreased [None]
  - Loss of consciousness [None]
  - Hypoglycaemic encephalopathy [Fatal]
  - Body fat disorder [None]

NARRATIVE: CASE EVENT DATE: 20141008
